FAERS Safety Report 10970882 (Version 1)
Quarter: 2015Q1

REPORT INFORMATION
  Report Type: Spontaneous
  Country: US (occurrence: US)
  Receive Date: 20150331
  Receipt Date: 20150331
  Transmission Date: 20150721
  Serious: Yes (Other)
  Sender: FDA-Public Use
  Company Number: US-JNJFOC-20150317396

PATIENT
  Sex: Female
  Weight: 85.28 kg

DRUGS (2)
  1. INVOKANA [Suspect]
     Active Substance: CANAGLIFLOZIN
     Indication: TYPE 2 DIABETES MELLITUS
     Route: 065
  2. PRILOSEC [Concomitant]
     Active Substance: OMEPRAZOLE MAGNESIUM
     Route: 065

REACTIONS (6)
  - Feeling abnormal [Recovering/Resolving]
  - Sensory disturbance [Recovered/Resolved]
  - Cognitive disorder [Recovering/Resolving]
  - Weight decreased [Unknown]
  - Deafness unilateral [Unknown]
  - Feeling abnormal [Unknown]
